FAERS Safety Report 11371067 (Version 2)
Quarter: 2015Q3

REPORT INFORMATION
  Report Type: Spontaneous
  Country: JP (occurrence: JP)
  Receive Date: 20150812
  Receipt Date: 20150915
  Transmission Date: 20151125
  Serious: Yes (Other)
  Sender: FDA-Public Use
  Company Number: JP-SA-2015SA119743

PATIENT
  Age: 78 Year
  Sex: Male

DRUGS (3)
  1. PLAVIX [Suspect]
     Active Substance: CLOPIDOGREL BISULFATE
     Indication: CARDIAC DISORDER
     Route: 048
     Dates: start: 20150818
  2. PLAVIX [Suspect]
     Active Substance: CLOPIDOGREL BISULFATE
     Indication: CARDIAC DISORDER
     Route: 048
     Dates: end: 20150812
  3. BAYASPIRIN [Concomitant]
     Active Substance: ASPIRIN

REACTIONS (1)
  - Cataract [Unknown]
